FAERS Safety Report 6452844-2 (Version None)
Quarter: 2009Q4

REPORT INFORMATION
  Report Type: 
  Country: None (occurrence: None)
  Receive Date: 20091116
  Receipt Date: 20091102
  Transmission Date: 20100525
  Serious: Yes (Life-Threatening, Hospitalization)
  Sender: FDA-Public Use
  Company Number: 2009290487

PATIENT
  Age: 70 Year
  Sex: Female
  Weight: 60 kg

DRUGS (5)
  1. FRAGMIN [Suspect]
     Indication: PROPHYLAXIS
     Dosage: 5000 IU, 1X/DAY, SUBCUTANEOUS ; 7500 IU, 1X/DAY
     Route: 058
     Dates: start: 20090914
  2. FRAGMIN [Suspect]
     Indication: PROPHYLAXIS
     Dosage: 5000 IU, 1X/DAY, SUBCUTANEOUS ; 7500 IU, 1X/DAY
     Route: 058
     Dates: start: 20090930
  3. PLAVIX [Concomitant]
  4. ASPIRIN [Concomitant]
  5. ATORVASTATIN CALCIUM [Concomitant]

REACTIONS (3)
  - DEVICE DISLOCATION [None]
  - HAEMORRHAGE [None]
  - MYOCARDIAL INFARCTION [None]
